FAERS Safety Report 4535334-3 (Version None)
Quarter: 2004Q4

REPORT INFORMATION
  Report Type: 
  Country: None (occurrence: None)
  Receive Date: 20041214
  Receipt Date: 20040910
  Transmission Date: 20050328
  Serious: No
  Sender: FDA-Public Use
  Company Number: 2004234865US

PATIENT
  Age: 46 Year
  Sex: Male
  Weight: 86.2 kg

DRUGS (1)
  1. BEXTRA [Suspect]
     Indication: JOINT STIFFNESS
     Dosage: 20 MG, QD, ORAL
     Route: 048
     Dates: start: 20040810, end: 20040906

REACTIONS (10)
  - DIZZINESS [None]
  - DYSPEPSIA [None]
  - EAR DISORDER [None]
  - FEAR [None]
  - HEADACHE [None]
  - NERVOUSNESS [None]
  - PAIN [None]
  - PRURITUS [None]
  - SEDATION [None]
  - TINNITUS [None]
